FAERS Safety Report 7472459-7 (Version None)
Quarter: 2011Q2

REPORT INFORMATION
  Report Type: 
  Country: None (occurrence: None)
  Receive Date: 20110511
  Receipt Date: 20110328
  Transmission Date: 20111010
  Serious: Yes (Hospitalization, Other)
  Sender: FDA-Public Use
  Company Number: US-BAYER-201039498NA

PATIENT
  Sex: Female
  Weight: 63 kg

DRUGS (7)
  1. MACROBID [Concomitant]
     Indication: URINARY TRACT INFECTION
     Dosage: 100 MG, BID
     Dates: start: 20081001
  2. YAZ [Suspect]
     Indication: PREMENSTRUAL SYNDROME
  3. ZOVIRAX [Concomitant]
     Indication: HERPES SIMPLEX
     Dosage: UNK
     Dates: start: 20081031
  4. PROTONIX [Concomitant]
     Dosage: 40 MG, QD
  5. BENTYL [Concomitant]
     Dosage: 10 MG, QID
  6. YAZ [Suspect]
     Indication: CONTRACEPTION
     Dosage: UNK
     Route: 048
     Dates: start: 20080301, end: 20100201
  7. PHENAZOPYRIDINE HCL TAB [Concomitant]
     Indication: URINARY TRACT INFECTION
     Dosage: 100 MG, TID
     Dates: start: 20081031

REACTIONS (4)
  - GALLBLADDER NON-FUNCTIONING [None]
  - PAIN [None]
  - ORGAN FAILURE [None]
  - CHOLECYSTITIS CHRONIC [None]
